FAERS Safety Report 6056557-0 (Version None)
Quarter: 2009Q1

REPORT INFORMATION
  Report Type: 
  Country: None (occurrence: None)
  Receive Date: 20090126
  Receipt Date: 20090126
  Transmission Date: 20090719
  Serious: Yes (Disabling)
  Sender: FDA-Public Use
  Company Number: None

PATIENT
  Sex: Male
  Weight: 81.6475 kg

DRUGS (1)
  1. VALTREX [Suspect]
     Indication: HERPES ZOSTER
     Dosage: 1 CAPLET 1 EVERY 12 HRS
     Dates: start: 20070918, end: 20071125

REACTIONS (4)
  - BLINDNESS [None]
  - HYPOACUSIS [None]
  - OEDEMA PERIPHERAL [None]
  - RETINAL SCAR [None]
